FAERS Safety Report 7089527-4 (Version None)
Quarter: 2010Q4

REPORT INFORMATION
  Report Type: 
  Country: None (occurrence: None)
  Receive Date: 20101108
  Receipt Date: 20101013
  Transmission Date: 20110411
  Serious: No
  Sender: FDA-Public Use
  Company Number: US-BAYER-201037308NA

PATIENT
  Age: 32 Year
  Sex: Female

DRUGS (1)
  1. MAGNEVIST [Suspect]
     Indication: NUCLEAR MAGNETIC RESONANCE IMAGING BRAIN
     Dosage: RIGHT ANTECUBITAL
     Route: 042
     Dates: start: 20101013, end: 20101013

REACTIONS (1)
  - EXTRAVASATION [None]
